FAERS Safety Report 23150265 (Version 1)
Quarter: 2023Q4

REPORT INFORMATION
  Report Type: Spontaneous
  Country: NO (occurrence: NO)
  Receive Date: 20231106
  Receipt Date: 20231106
  Transmission Date: 20240110
  Serious: Yes (Hospitalization, Other)
  Sender: FDA-Public Use
  Company Number: None

PATIENT
  Age: 33 Year
  Sex: Male
  Weight: 77 kg

DRUGS (2)
  1. SULFASALAZINE [Suspect]
     Active Substance: SULFASALAZINE
     Indication: Dyspepsia
     Dosage: UNK
     Route: 048
     Dates: start: 1992, end: 1992
  2. PENTASA [Suspect]
     Active Substance: MESALAMINE
     Indication: Dyspepsia
     Dosage: UNK
     Route: 048
     Dates: start: 1992, end: 1992

REACTIONS (7)
  - Stevens-Johnson syndrome [Unknown]
  - Hyperpyrexia [Recovered/Resolved]
  - Erythema [Recovered/Resolved]
  - Stomatitis [Recovered/Resolved]
  - Skin exfoliation [Recovered/Resolved]
  - Stomatitis [Recovered/Resolved]
  - Off label use [Unknown]

NARRATIVE: CASE EVENT DATE: 19920101
